FAERS Safety Report 18856046 (Version 1)
Quarter: 2021Q1

REPORT INFORMATION
  Report Type: Other
  Country: CA (occurrence: CA)
  Receive Date: 20210206
  Receipt Date: 20210206
  Transmission Date: 20210420
  Serious: Yes (Death, Other)
  Sender: FDA-Public Use
  Company Number: CA-APOTEX-2021AP002129

PATIENT
  Age: 67 Year
  Sex: Male

DRUGS (4)
  1. TACROLIMUS. [Suspect]
     Active Substance: TACROLIMUS
     Indication: CHOLANGITIS SCLEROSING
     Dosage: UNK
     Route: 065
  2. METHYLPREDNISOLONE. [Suspect]
     Active Substance: METHYLPREDNISOLONE
     Indication: CHOLANGITIS SCLEROSING
     Dosage: UNK
     Route: 042
  3. PREDNISONE. [Suspect]
     Active Substance: PREDNISONE
     Indication: CHOLANGITIS SCLEROSING
     Dosage: 50 MILLIGRAM, QD
     Route: 065
  4. MYCOPHENOLATE MOFETIL. [Suspect]
     Active Substance: MYCOPHENOLATE MOFETIL
     Indication: CHOLANGITIS SCLEROSING
     Dosage: UNK
     Route: 065

REACTIONS (5)
  - Therapeutic response delayed [Fatal]
  - Hepatic enzyme increased [Fatal]
  - Cholestatic liver injury [Fatal]
  - Condition aggravated [Fatal]
  - Product use in unapproved indication [Fatal]
